FAERS Safety Report 22081597 (Version 2)
Quarter: 2023Q1

REPORT INFORMATION
  Report Type: Spontaneous
  Country: US (occurrence: US)
  Receive Date: 20230310
  Receipt Date: 20230321
  Transmission Date: 20230417
  Serious: Yes (Other)
  Sender: FDA-Public Use
  Company Number: US-GBT-020652

PATIENT
  Sex: Male

DRUGS (1)
  1. OXBRYTA [Suspect]
     Active Substance: VOXELOTOR
     Indication: Product used for unknown indication
     Route: 048
     Dates: start: 20230117, end: 20230224

REACTIONS (3)
  - Pulmonary embolism [Unknown]
  - Cerebrovascular accident [Recovered/Resolved]
  - Therapy cessation [Unknown]
